FAERS Safety Report 4977235-2 (Version None)
Quarter: 2006Q2

REPORT INFORMATION
  Report Type: 
  Country: None (occurrence: None)
  Receive Date: 20060419
  Receipt Date: 20050414
  Transmission Date: 20061013
  Serious: Yes (Other)
  Sender: FDA-Public Use
  Company Number: US-MERCK-0504USA02941

PATIENT
  Age: 54 Year
  Sex: Male
  Weight: 91 kg

DRUGS (25)
  1. VIOXX [Suspect]
     Indication: RHEUMATOID ARTHRITIS
     Route: 048
     Dates: start: 20000101, end: 20040901
  2. ZOCOR [Concomitant]
     Indication: CARDIAC DISORDER
     Route: 065
     Dates: start: 19990101
  3. ASPIRIN [Concomitant]
     Indication: PROPHYLAXIS
     Route: 065
     Dates: start: 20030101
  4. PLAVIX [Concomitant]
     Indication: ANTICOAGULANT THERAPY
     Route: 065
     Dates: start: 20030101
  5. IMDUR [Concomitant]
     Indication: CARDIAC DISORDER
     Route: 065
  6. ATENOLOL [Concomitant]
     Indication: CARDIAC DISORDER
     Route: 065
     Dates: start: 20031201, end: 20060101
  7. VASOTEC [Concomitant]
     Indication: CARDIAC DISORDER
     Route: 065
     Dates: start: 20031201
  8. ARAVA [Concomitant]
     Indication: RHEUMATOID ARTHRITIS
     Route: 065
  9. MEDROL [Concomitant]
     Indication: RHEUMATOID ARTHRITIS
     Route: 065
  10. INJECTABLE GOLD (UNSPECIFIED) [Concomitant]
     Indication: RHEUMATOID ARTHRITIS
     Route: 051
  11. INJECTABLE GOLD (UNSPECIFIED) [Concomitant]
     Route: 051
  12. PLAQUENIL [Concomitant]
     Indication: RHEUMATOID ARTHRITIS
     Route: 065
  13. ZITHROMAX [Concomitant]
     Indication: NASOPHARYNGITIS
     Route: 065
  14. LORAZEPAM [Concomitant]
     Indication: SLEEP DISORDER
     Route: 065
  15. HUMIRA [Concomitant]
     Indication: RHEUMATOID ARTHRITIS
     Route: 065
     Dates: start: 20030101
  16. MONOPRIL [Concomitant]
     Indication: HYPERTENSION
     Route: 065
     Dates: start: 20030101
  17. MONOPRIL [Concomitant]
     Route: 065
     Dates: start: 20030101
  18. TOPROL-XL [Concomitant]
     Indication: HYPERTENSION
     Route: 065
     Dates: start: 20030101
  19. CARDIZEM [Concomitant]
     Indication: CARDIAC DISORDER
     Route: 065
     Dates: start: 20030101
  20. NAPROXEN [Concomitant]
     Indication: PAIN
     Route: 065
     Dates: start: 19970101
  21. NAPROXEN [Concomitant]
     Route: 065
     Dates: start: 19970101
  22. ADVIL [Concomitant]
     Indication: PAIN
     Route: 065
     Dates: start: 19970101
  23. METHOTREXATE [Concomitant]
     Route: 065
     Dates: start: 19970101, end: 20010101
  24. METHOTREXATE [Concomitant]
     Route: 065
     Dates: start: 19970101, end: 20010101
  25. ENALAPRIL MALEATE [Concomitant]
     Route: 065
     Dates: start: 20031201

REACTIONS (8)
  - ANGINA PECTORIS [None]
  - CARDIAC DISORDER [None]
  - CORONARY ARTERY OCCLUSION [None]
  - HYPERTENSION [None]
  - MYOCARDIAL INFARCTION [None]
  - NASOPHARYNGITIS [None]
  - SINUS DISORDER [None]
  - SLEEP DISORDER [None]
